FAERS Safety Report 6314363-3 (Version None)
Quarter: 2009Q3

REPORT INFORMATION
  Report Type: 
  Country: None (occurrence: None)
  Receive Date: 20090819
  Receipt Date: 20090810
  Transmission Date: 20100115
  Serious: Yes (Hospitalization)
  Sender: FDA-Public Use
  Company Number: CA-BAXTER-2009BH010712

PATIENT
  Age: 51 Year
  Sex: Male
  Weight: 108 kg

DRUGS (1)
  1. TISSEEL VH/SD KIT LYOPHILIZED [Suspect]
     Indication: SURGERY
     Route: 061
     Dates: start: 20090522, end: 20090522

REACTIONS (1)
  - HYDROCEPHALUS [None]
